FAERS Safety Report 9114673 (Version 2)
Quarter: 2013Q3

REPORT INFORMATION
  Report Type: Spontaneous
  Country: IT (occurrence: None)
  Receive Date: 20130128
  Receipt Date: 20130823
  Transmission Date: 20140515
  Serious: Yes (Other)
  Sender: FDA-Public Use
  Company Number: AG-2013-0082

PATIENT
  Age: 31 Year
  Sex: Male

DRUGS (2)
  1. MYLERAN [Suspect]
     Indication: PRODUCT USED FOR UNKNOWN INDICATION
     Dosage: (UNKNOWN, UNKNOWN), INTRAVENOUS (NOT OTHERWISE SPECIFIED)?11/27/2012  -  11/30/2012?
     Route: 042
     Dates: start: 20121127, end: 20121130
  2. CYCLOPHOSPHAMIDE [Suspect]
     Indication: PRODUCT USED FOR UNKNOWN INDICATION
     Dosage: (UNKNOWN, UNKNOWN), INTRAVENOUS (NOT OTHERWISE SPECIFIED)?12/01/2012  -  12/02/2012
     Route: 042
     Dates: start: 20121201, end: 20121202

REACTIONS (1)
  - Mucosal inflammation [None]
